FAERS Safety Report 5256132-1 (Version None)
Quarter: 2007Q1

REPORT INFORMATION
  Report Type: 
  Country: None (occurrence: None)
  Receive Date: 20070306
  Receipt Date: 20070226
  Transmission Date: 20070707
  Serious: Yes (Hospitalization)
  Sender: FDA-Public Use
  Company Number: 2007UW03984

PATIENT
  Age: 66 Year
  Sex: Female

DRUGS (8)
  1. SEROQUEL [Suspect]
     Indication: SLEEP DISORDER
     Route: 048
     Dates: start: 20020101
  2. ATIVAN [Concomitant]
  3. CLONAZEPAM [Concomitant]
  4. VESICARE [Concomitant]
     Indication: BLADDER DISORDER
  5. NOVOSIMVASTATIN [Concomitant]
  6. EFFEXOR [Concomitant]
  7. LITHIUM CARBONATE [Concomitant]
  8. PERCOCET [Concomitant]
     Indication: BACK PAIN

REACTIONS (5)
  - DIABETES MELLITUS [None]
  - POLLAKIURIA [None]
  - SURGERY [None]
  - THIRST [None]
  - WEIGHT INCREASED [None]
